FAERS Safety Report 8299708-X (Version None)
Quarter: 2012Q2

REPORT INFORMATION
  Report Type: 
  Country: None (occurrence: None)
  Receive Date: 20120419
  Receipt Date: 20120411
  Transmission Date: 20120825
  Serious: Yes (Hospitalization, Other)
  Sender: FDA-Public Use
  Company Number: CA-ROCHE-GNE320095

PATIENT
  Sex: Female

DRUGS (8)
  1. XOLAIR [Suspect]
     Dosage: 375 MG, Q2W
     Route: 058
     Dates: start: 20111003
  2. ADVAIR DISKUS 100/50 [Concomitant]
     Indication: PRODUCT USED FOR UNKNOWN INDICATION
     Dosage: UNK
  3. SPIRIVA [Concomitant]
     Indication: PRODUCT USED FOR UNKNOWN INDICATION
     Dosage: UNK
  4. XOLAIR [Suspect]
     Indication: ASTHMA
     Dosage: 375 MG, Q2W
     Route: 058
     Dates: start: 20110210
  5. XOLAIR [Suspect]
     Dosage: 375 MG, Q2W
     Route: 058
     Dates: start: 20110601
  6. VENTOLIN [Concomitant]
     Indication: PRODUCT USED FOR UNKNOWN INDICATION
  7. XOLAIR [Suspect]
     Dates: start: 20111031
  8. ALVESCO [Concomitant]
     Indication: PRODUCT USED FOR UNKNOWN INDICATION
     Dosage: UNK

REACTIONS (17)
  - DYSPNOEA [None]
  - ALOPECIA [None]
  - BALANCE DISORDER [None]
  - DIZZINESS [None]
  - PARAESTHESIA [None]
  - COUGH [None]
  - WHEEZING [None]
  - NASOPHARYNGITIS [None]
  - ASTHMA [None]
  - FATIGUE [None]
  - FALL [None]
  - TREMOR [None]
  - MUSCLE SPASMS [None]
  - OBSTRUCTIVE AIRWAYS DISORDER [None]
  - CHEST DISCOMFORT [None]
  - ASTHENIA [None]
  - HEADACHE [None]
